FAERS Safety Report 9365685 (Version 2)
Quarter: 2013Q3

REPORT INFORMATION
  Report Type: Spontaneous
  Country: US (occurrence: US)
  Receive Date: 20130625
  Receipt Date: 20130911
  Transmission Date: 20140515
  Serious: No
  Sender: FDA-Public Use
  Company Number: US-BAYER-2013-075005

PATIENT
  Age: 25 Year
  Sex: Female
  Weight: 101.59 kg

DRUGS (4)
  1. MIRENA [Suspect]
     Indication: CONTRACEPTION
     Dosage: 20 MCG/24HR, CONT
     Route: 015
     Dates: start: 20120410, end: 201304
  2. MIRENA [Suspect]
     Indication: COAGULOPATHY
  3. GABAPENTIN [Concomitant]
     Dosage: UNK UNK, QD
  4. ASA [Concomitant]
     Indication: COAGULOPATHY
     Dosage: UNK UNK, QD

REACTIONS (1)
  - Device expulsion [None]
